FAERS Safety Report 6171683-3 (Version None)
Quarter: 2009Q2

REPORT INFORMATION
  Report Type: 
  Country: None (occurrence: None)
  Receive Date: 20090429
  Receipt Date: 20090421
  Transmission Date: 20091009
  Serious: Yes (Disabling)
  Sender: FDA-Public Use
  Company Number: A0766609A

PATIENT
  Age: 32 Year
  Sex: Female
  Weight: 49.1 kg

DRUGS (3)
  1. LAMICTAL [Suspect]
     Indication: EPILEPSY
     Dosage: 200MG TWICE PER DAY
     Route: 048
     Dates: start: 20070101
  2. VITAMIN AND MINERAL PRENATAL SUPPLEMENT W/ FOLIC ACID CAP [Concomitant]
  3. CALCIUM [Concomitant]

REACTIONS (8)
  - ANXIETY [None]
  - CONVULSION [None]
  - DRUG EXPOSURE DURING PREGNANCY [None]
  - DRUG INEFFECTIVE [None]
  - GRAND MAL CONVULSION [None]
  - INSOMNIA [None]
  - PARAESTHESIA [None]
  - SPEECH DISORDER [None]
